FAERS Safety Report 8367897-4 (Version None)
Quarter: 2012Q2

REPORT INFORMATION
  Report Type: 
  Country: None (occurrence: None)
  Receive Date: 20120517
  Receipt Date: 20120515
  Transmission Date: 20120825
  Serious: No
  Sender: FDA-Public Use
  Company Number: US-PFIZER INC-2012115832

PATIENT
  Sex: Female
  Weight: 48.98 kg

DRUGS (2)
  1. CODEINE SULFATE [Suspect]
     Dosage: UNK
  2. CHANTIX [Suspect]
     Indication: SMOKING CESSATION THERAPY
     Dosage: 0.5 MG, 1X/DAY
     Route: 048
     Dates: start: 20120508

REACTIONS (4)
  - DRUG HYPERSENSITIVITY [None]
  - NAUSEA [None]
  - CHEST PAIN [None]
  - ABDOMINAL PAIN UPPER [None]
